FAERS Safety Report 23975237 (Version 1)
Quarter: 2024Q2

REPORT INFORMATION
  Report Type: Report from Study
  Country: US (occurrence: US)
  Receive Date: 20240614
  Receipt Date: 20240614
  Transmission Date: 20240716
  Serious: Yes (Other)
  Sender: FDA-Public Use
  Company Number: US-GILEAD-2024-0676304

PATIENT
  Sex: Female

DRUGS (3)
  1. AMBRISENTAN [Suspect]
     Active Substance: AMBRISENTAN
     Indication: Pulmonary arterial hypertension
     Dosage: 5 MG, QD
     Route: 065
     Dates: start: 20120823
  2. ADEMPAS [Concomitant]
     Active Substance: RIOCIGUAT
  3. TYVASO [Concomitant]
     Active Substance: TREPROSTINIL

REACTIONS (8)
  - Osteoporosis [Unknown]
  - Blindness [Unknown]
  - Autism spectrum disorder [Unknown]
  - Pain in jaw [Unknown]
  - Blood cholesterol increased [Unknown]
  - Pain [Unknown]
  - Feeling abnormal [Unknown]
  - Hypotension [Unknown]
